FAERS Safety Report 9275470 (Version 1)
Quarter: 2013Q2

REPORT INFORMATION
  Report Type: Spontaneous
  Country: US (occurrence: None)
  Receive Date: 20130501
  Receipt Date: 20130501
  Transmission Date: 20140414
  Serious: Yes (Other)
  Sender: FDA-Public Use
  Company Number: None

PATIENT
  Sex: Female
  Weight: 97.07 kg

DRUGS (1)
  1. ZOCOR 40 MG, COMPRIM?S PELLICUL?S [Suspect]
     Indication: BLOOD CHOLESTEROL INCREASED
     Dates: start: 2003, end: 2013

REACTIONS (3)
  - Hepatic failure [None]
  - Nausea [None]
  - Diabetes mellitus [None]
